FAERS Safety Report 18416738 (Version 1)
Quarter: 2020Q4

REPORT INFORMATION
  Report Type: Spontaneous
  Country: IT (occurrence: IT)
  Receive Date: 20201022
  Receipt Date: 20201022
  Transmission Date: 20210114
  Serious: Yes (Other)
  Sender: FDA-Public Use
  Company Number: IT-MYLANLABS-2020M1088746

PATIENT
  Age: 51 Year
  Sex: Female

DRUGS (4)
  1. PROCARBAZINE [Suspect]
     Active Substance: PROCARBAZINE
     Indication: HODGKIN^S DISEASE STAGE III
     Dosage: UNK, CYCLIC (THREE COURSES)
     Dates: start: 198705, end: 198707
  2. CHLORMETHINE [Suspect]
     Active Substance: MECHLORETHAMINE
     Indication: HODGKIN^S DISEASE STAGE III
     Dosage: UNK, CYCLIC (THREE COURSES )
     Dates: start: 198705, end: 198707
  3. VINCRISTINE SULFATE. [Suspect]
     Active Substance: VINCRISTINE SULFATE
     Indication: HODGKIN^S DISEASE STAGE III
     Dosage: UNK, CYCLIC(THREE COURSES)
     Dates: start: 198705, end: 198707
  4. PREDNISONE. [Suspect]
     Active Substance: PREDNISONE
     Indication: HODGKIN^S DISEASE STAGE III
     Dosage: UNK, CYCLIC (THREE COURSES)
     Dates: start: 198705, end: 198707

REACTIONS (2)
  - Pleural sarcoma [Unknown]
  - Second primary malignancy [Unknown]

NARRATIVE: CASE EVENT DATE: 200207
